FAERS Safety Report 8659242 (Version 3)
Quarter: 2012Q4

REPORT INFORMATION
  Report Type: 
  Country: CA (occurrence: CA)
  Receive Date: 20120711
  Receipt Date: 20120924
  Transmission Date: 20130627
  Serious: Yes (Death, Hospitalization, Other)
  Sender: FDA-Public Use
  Company Number: PHHY2012CA058931

PATIENT
  Age: 86 Year
  Sex: Male

DRUGS (1)
  1. ACLASTA [Suspect]
     Indication: OSTEOPOROSIS
     Route: 042
     Dates: start: 20111004

REACTIONS (3)
  - Death [Fatal]
  - Fall [Unknown]
  - Hip fracture [Unknown]
